FAERS Safety Report 17348030 (Version 1)
Quarter: 2020Q1

REPORT INFORMATION
  Report Type: Report from Study
  Country: CA (occurrence: CA)
  Receive Date: 20200130
  Receipt Date: 20200130
  Transmission Date: 20200409
  Serious: Yes (Other)
  Sender: FDA-Public Use
  Company Number: CA-MYLANLABS-2020M1010827

PATIENT
  Age: 34 Year
  Sex: Female

DRUGS (1)
  1. TENOFOVIR DISOPROXIL [Suspect]
     Active Substance: TENOFOVIR DISOPROXIL
     Indication: CHRONIC HEPATITIS B
     Route: 065

REACTIONS (3)
  - Rebound effect [Unknown]
  - Maternal exposure during pregnancy [Recovered/Resolved]
  - Chronic hepatitis B [Unknown]
